FAERS Safety Report 19013680 (Version 1)
Quarter: 2021Q1

REPORT INFORMATION
  Report Type: Spontaneous
  Country: CL (occurrence: CL)
  Receive Date: 20210316
  Receipt Date: 20210316
  Transmission Date: 20210420
  Serious: No
  Sender: FDA-Public Use
  Company Number: CL-PFIZER INC-2021228466

PATIENT
  Sex: Female

DRUGS (1)
  1. SAYANA [Suspect]
     Active Substance: MEDROXYPROGESTERONE

REACTIONS (2)
  - Drug dose omission by device [Unknown]
  - Device issue [Unknown]
